FAERS Safety Report 6175856-5 (Version None)
Quarter: 2009Q2

REPORT INFORMATION
  Report Type: 
  Country: None (occurrence: None)
  Receive Date: 20090501
  Receipt Date: 20090422
  Transmission Date: 20091009
  Serious: Yes (Other)
  Sender: FDA-Public Use
  Company Number: DE-ELI_LILLY_AND_COMPANY-DE200904005121

PATIENT
  Sex: Female

DRUGS (3)
  1. YENTREVE [Suspect]
     Indication: STRESS URINARY INCONTINENCE
     Dosage: 40 MG, DAILY (1/D)
     Route: 048
     Dates: start: 20090310, end: 20090326
  2. DUSODRIL [Concomitant]
     Dosage: 2 D/F, DAILY (1/D)
     Route: 048
     Dates: start: 20000101
  3. LEVOTHYROXINE SODIUM [Concomitant]
     Indication: HYPOTHYROIDISM
     Dosage: 50 MG, DAILY (1/D)
     Route: 048
     Dates: start: 20020101

REACTIONS (2)
  - DIARRHOEA HAEMORRHAGIC [None]
  - INTRAOCULAR PRESSURE INCREASED [None]
